FAERS Safety Report 10072569 (Version 3)
Quarter: 2014Q2

REPORT INFORMATION
  Report Type: Spontaneous
  Country: MX (occurrence: None)
  Receive Date: 20140409
  Receipt Date: 20140617
  Transmission Date: 20141212
  Serious: Yes (Death)
  Sender: FDA-Public Use
  Company Number: 2014MPI00295

PATIENT
  Sex: 0

DRUGS (1)
  1. BRENTUXIMAB VEDOTIN [Suspect]
     Indication: MYCOSIS FUNGOIDES

REACTIONS (4)
  - Febrile neutropenia [None]
  - Erythema [None]
  - Off label use [None]
  - Infusion site erythema [None]
